FAERS Safety Report 21028622 (Version 1)
Quarter: 2022Q2

REPORT INFORMATION
  Report Type: Spontaneous
  Country: US (occurrence: US)
  Receive Date: 20220630
  Receipt Date: 20220630
  Transmission Date: 20220721
  Serious: Yes (Hospitalization)
  Sender: FDA-Public Use
  Company Number: US-IGSA-BIG0019351

PATIENT
  Age: 66 Year
  Sex: Male
  Weight: 65.77 kg

DRUGS (7)
  1. GAMMAKED [Suspect]
     Active Substance: HUMAN IMMUNOGLOBULIN G
     Indication: Polyneuropathy
     Dosage: 20 GRAM, Q.WK.
     Route: 042
     Dates: start: 20220415, end: 20220617
  2. GAMMAKED [Suspect]
     Active Substance: HUMAN IMMUNOGLOBULIN G
     Indication: Off label use
     Dosage: 10 GRAM, Q.WK.
     Route: 042
     Dates: start: 20220415, end: 20220617
  3. BUPROPION [Concomitant]
     Active Substance: BUPROPION
     Dosage: 100 UNK, QD
  4. LORAZEPAM [Concomitant]
     Active Substance: LORAZEPAM
     Dosage: UNK UNK, QD
  5. NALTREXONE [Concomitant]
     Active Substance: NALTREXONE
     Dosage: 0.81 GRAM, BID
  6. ROSUVASTATIN [Concomitant]
     Active Substance: ROSUVASTATIN
     Dosage: 10 MILLIGRAM, QD
  7. CIALIS [Concomitant]
     Active Substance: TADALAFIL
     Dosage: 5 MILLIGRAM, QD

REACTIONS (1)
  - Small intestinal obstruction [Unknown]

NARRATIVE: CASE EVENT DATE: 20220619
